FAERS Safety Report 8294351-0 (Version None)
Quarter: 2012Q2

REPORT INFORMATION
  Report Type: 
  Country: None (occurrence: None)
  Receive Date: 20120416
  Receipt Date: 20120406
  Transmission Date: 20120825
  Serious: Yes (Other)
  Sender: FDA-Public Use
  Company Number: 2012HGS-003491

PATIENT
  Age: 44 Year
  Sex: Female
  Weight: 117.4816 kg

DRUGS (11)
  1. COUMADIN [Concomitant]
  2. PREDNISONE [Concomitant]
  3. METFORMIN HCL [Concomitant]
  4. CRESTOR [Concomitant]
  5. BENLYSTA [Suspect]
     Indication: SYSTEMIC LUPUS ERYTHEMATOSUS
     Dosage: 1 IN 28 D, INTRAVENOUS (NOT OTHERWISE SPECIFIED)
     Route: 042
  6. JANUVIA (SITAGLIPTIN PHOSPHATE) (SITAGLIPTIN PHOSPHATE) [Concomitant]
  7. COLCHICINE [Concomitant]
  8. METHOTREXATE [Concomitant]
  9. COZAAR [Concomitant]
  10. PLAQUENIL [Concomitant]
  11. FOLIC ACID [Concomitant]

REACTIONS (5)
  - CAROTID ARTERY DISEASE [None]
  - ARTERIAL RUPTURE [None]
  - CAROTID ARTERIOSCLEROSIS [None]
  - LONG QT SYNDROME [None]
  - PALPITATIONS [None]
